FAERS Safety Report 9068791 (Version 1)
Quarter: 2013Q1

REPORT INFORMATION
  Report Type: Spontaneous
  Country: IR (occurrence: None)
  Receive Date: 20130122
  Receipt Date: 20130122
  Transmission Date: 20140127
  Serious: Yes (Other)
  Sender: FDA-Public Use
  Company Number: 2013P1000605

PATIENT
  Sex: Female

DRUGS (2)
  1. HEPARIN [Suspect]
     Indication: ANTICOAGULANT THERAPY
     Dosage: 35000 U
     Route: 058
  2. WARFARIN [Suspect]
     Indication: ANTICOAGULANT THERAPY

REACTIONS (1)
  - Cardiac valve replacement complication [None]
